FAERS Safety Report 8516759 (Version 2)
Quarter: 2012Q4

REPORT INFORMATION
  Report Type: Spontaneous
  Country: US (occurrence: None)
  Receive Date: 20120323
  Receipt Date: 20120917
  Transmission Date: 20130627
  Serious: Yes (Other)
  Sender: FDA-Public Use
  Company Number: 2011030615

PATIENT
  Age: 55 Year
  Sex: Female
  Weight: 76.2 kg

DRUGS (37)
  1. HIZENTRA [Suspect]
     Indication: IMMUNODEFICIENCY COMMON VARIABLE
     Dosage: 11 G 1X/WEEK, 55 ML EVERY WEEK ON THREE TO FOUR SITES OVER 1.5 HOURS SUBCUTANEOUS
     Dates: start: 20111129, end: 20111129
  2. HIZENTRA [Suspect]
     Indication: IMMUNODEFICIENCY COMMON VARIABLE
     Route: 058
  3. HIZENTRA [Suspect]
     Indication: IMMUNODEFICIENCY COMMON VARIABLE
     Dates: start: 20110307
  4. HIZENTRA [Suspect]
     Indication: IMMUNODEFICIENCY COMMON VARIABLE
  5. HIZENTRA [Suspect]
     Indication: IMMUNODEFICIENCY COMMON VARIABLE
     Route: 058
  6. HIZENTRA [Suspect]
     Indication: IMMUNODEFICIENCY COMMON VARIABLE
     Route: 058
  7. HIZENTRA [Suspect]
     Indication: IMMUNODEFICIENCY COMMON VARIABLE
     Route: 058
  8. HIZENTRA [Suspect]
     Indication: IMMUNODEFICIENCY COMMON VARIABLE
     Dosage: 11 g 1x/week, (55 ml) 3-4 sites over 1.5 hours subcutaneous
     Dates: start: 20120315
  9. HIZENTRA [Suspect]
     Indication: IMMUNODEFICIENCY COMMON VARIABLE
     Route: 058
  10. HIZENTRA [Suspect]
     Indication: IMMUNODEFICIENCY COMMON VARIABLE
     Route: 058
  11. COLCRYS [Concomitant]
  12. ZITHROMAX [Concomitant]
  13. SINGULAIR [Concomitant]
  14. ALLEGRA [Concomitant]
  15. SYNTHROID [Concomitant]
  16. NEXIUM [Concomitant]
  17. FEMHFT (NORETHISTERONE) [Concomitant]
  18. FLEXERIL [Concomitant]
  19. MULTIVITAMIN (DAILY MULTIVITAMIN) [Concomitant]
  20. ACETAMINOPHEN [Concomitant]
  21. NAPROXEN (NAPROXEN) [Concomitant]
  22. TERAZOSIN (TERAZOSIN) [Concomitant]
  23. PRANDIN (DEFLAZACORT) [Concomitant]
  24. PSEUDOEPHEDRINE (PSEUDOEPHEDRINE) [Concomitant]
  25. TRAMADOL (TRAMADOL) [Concomitant]
  26. CALAN [Concomitant]
  27. ADVAIR (SERETIDE /01420901/) [Concomitant]
  28. MIRAPEX [Concomitant]
  29. FUROSEMIDE (FUROSEMIDE) [Concomitant]
  30. POTASSIUM CHLORIDE (POTASSIUM CHLORIDE) [Concomitant]
  31. LEVEMIR [Concomitant]
  32. NOVOLOG [Concomitant]
  33. FERROUS SULFATE (FERROUS SULFATE) [Concomitant]
  34. METOLAZONE (METOLAZONE) [Concomitant]
  35. CITRACAL (CALCIUM CITRATE) [Concomitant]
  36. VITAMIN D [Concomitant]
  37. LISINOPRIL (LISINOPRIL) [Concomitant]

REACTIONS (8)
  - Sinusitis [None]
  - Oedema peripheral [None]
  - Laceration [None]
  - Staphylococcal infection [None]
  - Injection site erythema [None]
  - Injection site bruising [None]
  - Infection [None]
  - Gout [None]
